FAERS Safety Report 13918996 (Version 3)
Quarter: 2020Q2

REPORT INFORMATION
  Report Type: Spontaneous
  Country: DE (occurrence: DE)
  Receive Date: 20170830
  Receipt Date: 20200603
  Transmission Date: 20200713
  Serious: Yes (Congenital Anomaly, Other)
  Sender: FDA-Public Use
  Company Number: DE-SUN PHARMACEUTICAL INDUSTRIES LTD-2017RR-148212

PATIENT
  Age: 9 Month
  Sex: Female
  Weight: 2.32 kg

DRUGS (5)
  1. LEVETIRACETAM. [Suspect]
     Active Substance: LEVETIRACETAM
     Dosage: 1000 MILLIGRAM, 1DOSE/12HOUR
     Route: 064
     Dates: start: 20160109, end: 20160210
  2. LEVETIRACETAM. [Suspect]
     Active Substance: LEVETIRACETAM
     Dosage: 1250 MG DAILY () UNK
     Route: 064
     Dates: start: 20160211, end: 20161003
  3. LEVETIRACETAM. [Suspect]
     Active Substance: LEVETIRACETAM
     Indication: EPILEPSY
     Dosage: 2250 [MG/D ]/INCREASED DOSE FROM GESTATIONAL WEEK 4 5/7
     Route: 064
     Dates: start: 20160109, end: 20161003
  4. OSPOLOT [Suspect]
     Active Substance: SULTHIAME
     Indication: EPILEPSY
     Dosage: 300 [MG/D]
     Route: 064
     Dates: start: 20160109, end: 20161003
  5. BELLA HEXAL [Concomitant]
     Active Substance: CYPROTERONE ACETATE\ETHINYL ESTRADIOL
     Indication: CONTRACEPTION
     Dosage: 0.035 [MG/D ] / 2  [MG/D ]
     Route: 064
     Dates: start: 20160109, end: 20160204

REACTIONS (4)
  - Small for dates baby [Unknown]
  - Low birth weight baby [Unknown]
  - Congenital cyst [Not Recovered/Not Resolved]
  - Foetal exposure during pregnancy [Unknown]

NARRATIVE: CASE EVENT DATE: 201601
